FAERS Safety Report 10204207 (Version 1)
Quarter: 2014Q2

REPORT INFORMATION
  Report Type: Spontaneous
  Country: US (occurrence: None)
  Receive Date: 20140527
  Receipt Date: 20140527
  Transmission Date: 20141212
  Serious: Yes (Hospitalization)
  Sender: FDA-Public Use
  Company Number: None

PATIENT
  Age: 53 Year
  Sex: Male

DRUGS (2)
  1. CETUXIMAB [Suspect]
     Indication: NEOPLASM MALIGNANT
     Route: 042
     Dates: start: 20111003, end: 20120220
  2. IRINOTECAN [Concomitant]

REACTIONS (6)
  - Device related infection [None]
  - Injury [None]
  - Catheter site erosion [None]
  - Bacterial infection [None]
  - Sepsis [None]
  - Post procedural infection [None]
